FAERS Safety Report 12953170 (Version 1)
Quarter: 2016Q4

REPORT INFORMATION
  Report Type: Spontaneous
  Country: FR (occurrence: FR)
  Receive Date: 20161117
  Receipt Date: 20161117
  Transmission Date: 20170207
  Serious: Yes (Hospitalization)
  Sender: FDA-Public Use
  Company Number: FR-ASTRAZENECA-2016SF19501

PATIENT
  Age: 73 Year
  Sex: Female

DRUGS (6)
  1. KOMBOGLYZE [Suspect]
     Active Substance: METFORMIN HYDROCHLORIDE\SAXAGLIPTIN
     Indication: TYPE 2 DIABETES MELLITUS
     Dosage: 2.5 MG/1000 MG
     Route: 048
     Dates: end: 20160916
  2. DIAMICRON [Concomitant]
     Active Substance: GLICLAZIDE
  3. IXPRIM [Concomitant]
     Active Substance: ACETAMINOPHEN\TRAMADOL HYDROCHLORIDE
  4. DAFALGAN [Concomitant]
     Active Substance: ACETAMINOPHEN
  5. LODOZ [Concomitant]
     Active Substance: BISOPROLOL FUMARATE\HYDROCHLOROTHIAZIDE
  6. FLUVASTATIN [Concomitant]
     Active Substance: FLUVASTATIN SODIUM

REACTIONS (2)
  - Diabetes mellitus inadequate control [Unknown]
  - Pemphigoid [Recovering/Resolving]

NARRATIVE: CASE EVENT DATE: 201607
